FAERS Safety Report 6704591-7 (Version None)
Quarter: 2010Q2

REPORT INFORMATION
  Report Type: 
  Country: None (occurrence: None)
  Receive Date: 20100430
  Receipt Date: 20100419
  Transmission Date: 20101027
  Serious: Yes (Disabling, Other)
  Sender: FDA-Public Use
  Company Number: PHHY2010US24961

PATIENT
  Sex: Female
  Weight: 39 kg

DRUGS (6)
  1. AFINITOR [Suspect]
     Indication: METASTATIC RENAL CELL CARCINOMA
     Dosage: 10 MG DAILY
     Route: 048
     Dates: start: 20100225, end: 20100303
  2. DURAGESIC-100 [Concomitant]
     Indication: PAIN
     Dosage: 25 UG, Q72H
     Route: 062
     Dates: start: 20100225, end: 20100227
  3. HYDROCODONE BITARTRATE [Concomitant]
     Indication: PAIN
     Dosage: UNK
     Route: 048
     Dates: start: 20100222
  4. SCOPOLAMINE ^DISPERSA^ [Concomitant]
     Indication: NAUSEA
     Dosage: 72 HR
     Route: 062
     Dates: start: 20100225
  5. SCOPOLAMINE ^DISPERSA^ [Concomitant]
     Indication: VOMITING
  6. MEGACE [Concomitant]
     Indication: DECREASED APPETITE
     Dosage: 20 CC IN AM
     Route: 048
     Dates: start: 20100208

REACTIONS (4)
  - CEREBRAL ATROPHY [None]
  - DERMAL CYST [None]
  - GENERAL PHYSICAL HEALTH DETERIORATION [None]
  - HALLUCINATION [None]
